FAERS Safety Report 4355919-7 (Version None)
Quarter: 2004Q2

REPORT INFORMATION
  Report Type: 
  Country: None (occurrence: None)
  Receive Date: 20040511
  Receipt Date: 20040430
  Transmission Date: 20050107
  Serious: Yes (Other)
  Sender: FDA-Public Use
  Company Number: DE-JNJFOC-20040202812

PATIENT
  Sex: Male

DRUGS (9)
  1. TOPAMAX [Suspect]
     Indication: EPILEPSY
     Route: 049
  2. PARKOTIL [Interacting]
     Route: 065
  3. PARKOTIL [Interacting]
     Route: 065
  4. COMTESS [Interacting]
     Indication: DRUG USE FOR UNKNOWN INDICATION
     Route: 049
  5. MADOPAR [Interacting]
     Route: 065
  6. MADOPAR [Interacting]
     Route: 065
  7. AMANTADINE HCL [Concomitant]
     Route: 049
  8. TEGRETOL [Concomitant]
     Indication: EPILEPSY
     Route: 065
  9. REMERGIL [Concomitant]
     Route: 065

REACTIONS (8)
  - BRADYKINESIA [None]
  - BRADYPHRENIA [None]
  - DEPRESSION [None]
  - DRUG INEFFECTIVE [None]
  - DRUG INTERACTION [None]
  - MEMORY IMPAIRMENT [None]
  - PARKINSON'S DISEASE [None]
  - TREMOR [None]
